FAERS Safety Report 24074820 (Version 1)
Quarter: 2024Q3

REPORT INFORMATION
  Report Type: Spontaneous
  Country: JP (occurrence: JP)
  Receive Date: 20240710
  Receipt Date: 20240710
  Transmission Date: 20241017
  Serious: No
  Sender: PIERRE FABRE MEDICAMENT
  Company Number: JP-PFM-2023-07389

PATIENT
  Age: 85 Year
  Sex: Male
  Weight: 50.7 kg

DRUGS (19)
  1. PROPRANOLOL [Suspect]
     Active Substance: PROPRANOLOL HYDROCHLORIDE
     Indication: Thyrotoxic crisis
     Dosage: 5 MG, UNK
     Route: 065
  2. PROPRANOLOL [Suspect]
     Active Substance: PROPRANOLOL HYDROCHLORIDE
     Indication: Off label use
     Dosage: 7.5 MG, UNK
     Route: 065
  3. PROPRANOLOL [Suspect]
     Active Substance: PROPRANOLOL HYDROCHLORIDE
     Dosage: 5 MG, UNK ON THE 13TH DAY
     Route: 065
  4. PROPRANOLOL [Suspect]
     Active Substance: PROPRANOLOL HYDROCHLORIDE
     Dosage: 2.5 MG, UNK ON THE 23RD DAY
     Route: 065
  5. METHIMAZOLE [Concomitant]
     Active Substance: METHIMAZOLE
     Indication: Thyrotoxic crisis
     Dosage: 15 MG
     Route: 065
  6. METHIMAZOLE [Concomitant]
     Active Substance: METHIMAZOLE
     Dosage: 30 MG
     Route: 065
  7. LANDIOLOL [Concomitant]
     Active Substance: LANDIOLOL
     Indication: Thyrotoxic crisis
     Dosage: 3 ?, UNK
     Route: 065
  8. LANDIOLOL [Concomitant]
     Active Substance: LANDIOLOL
     Dosage: 2 ?, UNK, FROM THE SECOND DAY
     Route: 065
  9. LANDIOLOL [Concomitant]
     Active Substance: LANDIOLOL
     Dosage: 1 ?, UNK, ON THE 4TH DAY AND DISCONTINUED ON THE 5TH DAY
     Route: 065
  10. HYDROCORTISONE [Concomitant]
     Active Substance: HYDROCORTISONE\HYDROCORTISONE ACETATE
     Indication: Thyrotoxic crisis
     Dosage: 100 MG?8 H
     Route: 065
  11. IODINE [Concomitant]
     Active Substance: IODINE
     Indication: Thyrotoxic crisis
     Dosage: 200 MG VIA A GASTRIC TUBE
     Route: 048
  12. RIVAROXABAN [Concomitant]
     Active Substance: RIVAROXABAN
     Indication: Product used for unknown indication
     Dosage: 10 MG
     Route: 065
  13. AZOSEMIDE [Concomitant]
     Active Substance: AZOSEMIDE
     Indication: Product used for unknown indication
     Dosage: 30 MG
     Route: 065
  14. DONEPEZIL [Concomitant]
     Active Substance: DONEPEZIL\DONEPEZIL HYDROCHLORIDE
     Indication: Product used for unknown indication
     Dosage: 5 MG
     Route: 065
  15. LEVODOPA [Concomitant]
     Active Substance: LEVODOPA
     Indication: Product used for unknown indication
     Dosage: 200 MG
     Route: 065
  16. BENSERAZIDE HYDROCHLORIDE [Concomitant]
     Active Substance: BENSERAZIDE HYDROCHLORIDE
     Indication: Product used for unknown indication
     Dosage: 50 MG
     Route: 065
  17. RAMELTEON [Concomitant]
     Active Substance: RAMELTEON
     Indication: Product used for unknown indication
     Dosage: 8 MG
     Route: 065
  18. LEMBOREXANT [Concomitant]
     Active Substance: LEMBOREXANT
     Indication: Product used for unknown indication
     Dosage: 5 MG
     Route: 065
  19. CLONAZEPAM [Concomitant]
     Active Substance: CLONAZEPAM
     Indication: Product used for unknown indication
     Dosage: 1.5 MG
     Route: 065

REACTIONS (4)
  - Product use issue [Unknown]
  - Product use issue [Unknown]
  - Product use in unapproved indication [Unknown]
  - Off label use [Unknown]
